FAERS Safety Report 21190264 (Version 1)
Quarter: 2022Q3

REPORT INFORMATION
  Report Type: Spontaneous
  Country: US (occurrence: US)
  Receive Date: 20220809
  Receipt Date: 20220809
  Transmission Date: 20221027
  Serious: Yes (Hospitalization)
  Sender: FDA-Public Use
  Company Number: US-SA-2022SA320015

PATIENT
  Age: 68 Year
  Sex: Male
  Weight: 123 kg

DRUGS (5)
  1. LOVENOX [Suspect]
     Active Substance: ENOXAPARIN SODIUM
     Indication: Product used for unknown indication
     Dosage: UNK
  2. DABRAFENIB [Suspect]
     Active Substance: DABRAFENIB
     Indication: Malignant melanoma
     Dosage: 75 MG, BID
     Route: 048
     Dates: start: 20180419
  3. DABRAFENIB [Suspect]
     Active Substance: DABRAFENIB
     Dosage: 75 MG, BID
     Route: 048
     Dates: start: 20220417
  4. TRAMETINIB [Suspect]
     Active Substance: TRAMETINIB
     Indication: Malignant melanoma
     Dosage: 1 MG, QD
     Route: 048
     Dates: start: 20180419
  5. TRAMETINIB [Suspect]
     Active Substance: TRAMETINIB
     Dosage: 1 MG, QD
     Route: 048
     Dates: start: 20220417

REACTIONS (4)
  - Wound infection [Unknown]
  - Ulcer [Unknown]
  - Discharge [Unknown]
  - Haematoma [Unknown]

NARRATIVE: CASE EVENT DATE: 20220317
